FAERS Safety Report 6057994-0 (Version None)
Quarter: 2009Q1

REPORT INFORMATION
  Report Type: 
  Country: None (occurrence: None)
  Receive Date: 20090127
  Receipt Date: 20090112
  Transmission Date: 20090719
  Serious: Yes (Death)
  Sender: FDA-Public Use
  Company Number: 08-223

PATIENT
  Sex: Male

DRUGS (1)
  1. FAZACLO ODT [Suspect]
     Dosage: 650 MG DAILY PO
     Route: 048
     Dates: start: 20060503, end: 20080815

REACTIONS (1)
  - LUNG NEOPLASM MALIGNANT [None]
